FAERS Safety Report 15235286 (Version 1)
Quarter: 2018Q3

REPORT INFORMATION
  Report Type: Spontaneous
  Country: DE (occurrence: DE)
  Receive Date: 20180803
  Receipt Date: 20180803
  Transmission Date: 20181010
  Serious: Yes (Hospitalization)
  Sender: FDA-Public Use
  Company Number: DE-SAMSUNG BIOEPIS-SB-2017-12254

PATIENT
  Age: 44 Year
  Sex: Male

DRUGS (1)
  1. INFLIXIMAB [Suspect]
     Active Substance: INFLIXIMAB
     Indication: TOXIC EPIDERMAL NECROLYSIS
     Dosage: 5 MG/KG BW
     Route: 065

REACTIONS (2)
  - Staphylococcal infection [Recovered/Resolved]
  - Off label use [Unknown]
